FAERS Safety Report 7686207-9 (Version None)
Quarter: 2011Q3

REPORT INFORMATION
  Report Type: 
  Country: None (occurrence: None)
  Receive Date: 20110816
  Receipt Date: 20110805
  Transmission Date: 20111222
  Serious: Yes (Hospitalization)
  Sender: FDA-Public Use
  Company Number: US-JNJFOC-20110804046

PATIENT
  Weight: 44.2 kg

DRUGS (4)
  1. HYDROCORTISONE [Concomitant]
  2. MESALAMINE [Concomitant]
     Route: 048
  3. REMICADE [Suspect]
     Indication: INFLAMMATORY BOWEL DISEASE
     Route: 042
     Dates: start: 20100927
  4. ANTIBIOTICS [Concomitant]
     Indication: INFLAMMATORY BOWEL DISEASE

REACTIONS (1)
  - WEIGHT DECREASED [None]
